FAERS Safety Report 6619909-3 (Version None)
Quarter: 2010Q1

REPORT INFORMATION
  Report Type: 
  Country: None (occurrence: None)
  Receive Date: 20100309
  Receipt Date: 20100302
  Transmission Date: 20100710
  Serious: Yes (Life-Threatening, Hospitalization)
  Sender: FDA-Public Use
  Company Number: JP-JNJFOC-20090806788

PATIENT
  Sex: Male
  Weight: 48 kg

DRUGS (10)
  1. ITRIZOLE [Suspect]
     Indication: ONYCHOMYCOSIS
     Route: 048
     Dates: start: 20090601, end: 20090813
  2. ITRIZOLE [Suspect]
     Route: 048
     Dates: start: 20090601, end: 20090813
  3. ITRIZOLE [Suspect]
     Route: 048
     Dates: start: 20090601, end: 20090813
  4. CONIEL [Concomitant]
     Indication: HYPERTENSION
     Route: 048
  5. BLOPRESS [Concomitant]
     Indication: HYPERTENSION
     Route: 048
  6. LIPITOR [Concomitant]
     Route: 048
  7. GASTER [Concomitant]
     Route: 048
  8. SELBEX [Concomitant]
     Route: 048
  9. LASIX [Concomitant]
     Indication: HYPERTENSION
     Route: 065
  10. AROFUTO [Concomitant]
     Route: 048

REACTIONS (4)
  - BRADYCARDIA [None]
  - HYPOTENSION [None]
  - OEDEMA [None]
  - SHOCK [None]
